FAERS Safety Report 6028519-0 (Version None)
Quarter: 2008Q4

REPORT INFORMATION
  Report Type: 
  Country: None (occurrence: None)
  Receive Date: 20081231
  Receipt Date: 20081231
  Transmission Date: 20090506
  Serious: No
  Sender: FDA-Public Use
  Company Number: None

PATIENT
  Age: 80 Year
  Sex: Male
  Weight: 92.99 kg

DRUGS (1)
  1. VARENICLINE [Suspect]
     Indication: SMOKING CESSATION THERAPY
     Dosage: 1 TAB BID PO
     Route: 048
     Dates: start: 20070921, end: 20071017

REACTIONS (2)
  - NAUSEA [None]
  - VOMITING [None]
